FAERS Safety Report 19243515 (Version 2)
Quarter: 2021Q2

REPORT INFORMATION
  Report Type: Spontaneous
  Country: CN (occurrence: CN)
  Receive Date: 20210511
  Receipt Date: 20210521
  Transmission Date: 20210717
  Serious: Yes (Hospitalization, Other)
  Sender: FDA-Public Use
  Company Number: CN-BRACCO-2021CN01934

PATIENT
  Age: 16 Year
  Sex: Male

DRUGS (3)
  1. SONOVUE [Suspect]
     Active Substance: SULFUR HEXAFLUORIDE
     Indication: ULTRASOUND ABDOMEN
     Dosage: 2 ML, SINGLE
     Route: 042
     Dates: start: 20210507, end: 20210507
  2. SONOVUE [Suspect]
     Active Substance: SULFUR HEXAFLUORIDE
     Indication: ULTRASOUND ABDOMEN
     Dosage: 2 ML, SINGLE
     Route: 042
     Dates: start: 20210507, end: 20210507
  3. SONOVUE [Suspect]
     Active Substance: SULFUR HEXAFLUORIDE
     Indication: ULTRASOUND ABDOMEN
     Dosage: 2 ML, SINGLE
     Route: 042
     Dates: start: 20210507, end: 20210507

REACTIONS (3)
  - Shock [Recovered/Resolved]
  - Off label use [Recovered/Resolved]
  - Eye oedema [Recovered/Resolved]

NARRATIVE: CASE EVENT DATE: 20210507
